FAERS Safety Report 25802612 (Version 1)
Quarter: 2025Q3

REPORT INFORMATION
  Report Type: Spontaneous
  Country: US (occurrence: US)
  Receive Date: 20250915
  Receipt Date: 20250915
  Transmission Date: 20251020
  Serious: Yes (Other)
  Sender: BAYER HEALTHCARE PHARMACEUTICALS INC.
  Company Number: US-BAYER-2025A118613

PATIENT
  Age: 33 Year
  Sex: Male

DRUGS (7)
  1. JIVI [Suspect]
     Active Substance: DAMOCTOCOG ALFA PEGOL
     Dosage: JIVI 1082/3144 IU: INFUSE~4320 UNITS (+/- 10%) AS NEEDED
     Route: 042
  2. JIVI [Suspect]
     Active Substance: DAMOCTOCOG ALFA PEGOL
     Route: 042
     Dates: start: 20250821, end: 20250821
  3. JIVI [Suspect]
     Active Substance: DAMOCTOCOG ALFA PEGOL
     Route: 042
     Dates: start: 20250828, end: 20250828
  4. JIVI [Suspect]
     Active Substance: DAMOCTOCOG ALFA PEGOL
     Route: 042
     Dates: start: 20250829, end: 20250829
  5. JIVI [Suspect]
     Active Substance: DAMOCTOCOG ALFA PEGOL
     Route: 042
     Dates: start: 20250903, end: 20250903
  6. JIVI [Suspect]
     Active Substance: DAMOCTOCOG ALFA PEGOL
     Route: 042
     Dates: start: 20250904, end: 20250904
  7. JIVI [Suspect]
     Active Substance: DAMOCTOCOG ALFA PEGOL
     Route: 042
     Dates: start: 20250905, end: 20250905

REACTIONS (2)
  - Vasectomy [Recovered/Resolved]
  - Infusion site swelling [Recovered/Resolved]

NARRATIVE: CASE EVENT DATE: 20250801
